FAERS Safety Report 5868805-8 (Version None)
Quarter: 2008Q3

REPORT INFORMATION
  Report Type: 
  Country: None (occurrence: None)
  Receive Date: 20080902
  Receipt Date: 20080902
  Transmission Date: 20090109
  Serious: Yes (Life-Threatening, Hospitalization, Disabling, Other)
  Sender: FDA-Public Use
  Company Number: None

PATIENT
  Age: 56 Year
  Sex: Female
  Weight: 90.2658 kg

DRUGS (2)
  1. METOPROLOL TARTRATE [Suspect]
     Indication: ARRHYTHMIA
     Dosage: 25 MG BID PO
     Route: 048
     Dates: start: 20040510, end: 20051202
  2. METOPROLOL SUCCINATE EXTENDED RELEASE [Suspect]
     Indication: ANGINA PECTORIS
     Dosage: 75 MG PER DAY/XR PO
     Route: 048
     Dates: start: 20050301, end: 20050329

REACTIONS (10)
  - ABNORMAL BEHAVIOUR [None]
  - BLOOD PRESSURE INCREASED [None]
  - DRESSLER'S SYNDROME [None]
  - DRUG INEFFECTIVE [None]
  - HALLUCINATION, AUDITORY [None]
  - HALLUCINATION, VISUAL [None]
  - INSOMNIA [None]
  - NERVOUSNESS [None]
  - PANIC REACTION [None]
  - VOMITING [None]
